FAERS Safety Report 18194481 (Version 4)
Quarter: 2021Q1

REPORT INFORMATION
  Report Type: Report from Study
  Country: US (occurrence: US)
  Receive Date: 20200825
  Receipt Date: 20210125
  Transmission Date: 20210419
  Serious: Yes (Hospitalization, Other)
  Sender: FDA-Public Use
  Company Number: US-AMGEN-USASL2020135619

PATIENT
  Sex: Female

DRUGS (1)
  1. ARANESP [Suspect]
     Active Substance: DARBEPOETIN ALFA
     Indication: PRODUCT USED FOR UNKNOWN INDICATION
     Dosage: 100 MICROGRAM, CONTINUOUS
     Route: 058

REACTIONS (4)
  - Laboratory test abnormal [Unknown]
  - Anaemia [Unknown]
  - Gastric varices haemorrhage [Unknown]
  - Haemodialysis [Not Recovered/Not Resolved]
